FAERS Safety Report 4828274-3 (Version None)
Quarter: 2005Q4

REPORT INFORMATION
  Report Type: 
  Country: None (occurrence: None)
  Receive Date: 20051114
  Receipt Date: 20051114
  Transmission Date: 20060501
  Serious: Yes (Hospitalization)
  Sender: FDA-Public Use
  Company Number: None

PATIENT
  Age: 57 Year
  Sex: Female
  Weight: 119.7496 kg

DRUGS (7)
  1. CARBOPLATIN [Suspect]
     Indication: LUNG NEOPLASM MALIGNANT
     Dosage: 668 IV @ 1091 @  1783
     Route: 042
     Dates: start: 20051020
  2. ALIMTA [Suspect]
     Dosage: 1783 AVASTIN OTHER HELD
     Dates: start: 20051110
  3. AVASTIN [Suspect]
  4. BENADRYL [Concomitant]
  5. TAGAMET [Concomitant]
  6. ALBUTEROL [Concomitant]
  7. EPINEPHRINE [Concomitant]

REACTIONS (2)
  - INFUSION RELATED REACTION [None]
  - PULMONARY EMBOLISM [None]
